FAERS Safety Report 12833755 (Version 1)
Quarter: 2016Q4

REPORT INFORMATION
  Report Type: Spontaneous
  Country: DE (occurrence: DE)
  Receive Date: 20161010
  Receipt Date: 20161010
  Transmission Date: 20170207
  Serious: Yes (Hospitalization, Other)
  Sender: FDA-Public Use
  Company Number: DE-EDGEMONT-2016EDG00029

PATIENT
  Age: 35 Year
  Sex: Female

DRUGS (5)
  1. DIAZEPAM. [Concomitant]
     Active Substance: DIAZEPAM
     Dosage: 30 MG, UNK
     Route: 065
  2. BUPROPION. [Suspect]
     Active Substance: BUPROPION
     Dosage: 600 MG, UNK
     Route: 042
  3. VODKA [Suspect]
     Active Substance: ALCOHOL
     Dosage: 2 BOTTLES, DAILY
     Route: 048
  4. LEVOMETHADONE [Concomitant]
     Active Substance: LEVOMETHADONE
     Dosage: 8 ML, 1X/DAY
     Route: 065
  5. BATH SALTS [Suspect]
     Active Substance: AMPHETAMINE
     Route: 042

REACTIONS (6)
  - Incorrect route of drug administration [Unknown]
  - Abscess sterile [Recovered/Resolved]
  - Drug abuse [Unknown]
  - Osteomyelitis [Unknown]
  - Generalised tonic-clonic seizure [Unknown]
  - Dependence [Unknown]
